FAERS Safety Report 7079525-9 (Version None)
Quarter: 2010Q4

REPORT INFORMATION
  Report Type: 
  Country: None (occurrence: None)
  Receive Date: 20101022
  Receipt Date: 20101007
  Transmission Date: 20110411
  Serious: Yes (Hospitalization, Other)
  Sender: FDA-Public Use
  Company Number: 2006AL002060

PATIENT
  Age: 67 Year

DRUGS (3)
  1. IBUPROFEN [Suspect]
  2. HEPARIN [Suspect]
     Indication: DEEP VEIN THROMBOSIS
  3. MORPHINE [Concomitant]

REACTIONS (1)
  - BARRETT'S OESOPHAGUS [None]
